FAERS Safety Report 6574464-1 (Version None)
Quarter: 2010Q1

REPORT INFORMATION
  Report Type: 
  Country: None (occurrence: None)
  Receive Date: 20100209
  Receipt Date: 20090803
  Transmission Date: 20100710
  Serious: No
  Sender: FDA-Public Use
  Company Number: A0800109A

PATIENT
  Age: 50 Year
  Sex: Male

DRUGS (7)
  1. PAXIL [Suspect]
     Indication: ANXIETY
     Dosage: 10MG TWICE PER DAY
     Route: 048
     Dates: start: 19940101
  2. PAXIL [Suspect]
     Dosage: 10MG TWICE PER DAY
     Route: 048
     Dates: start: 19940101
  3. ALLOPURINOL [Concomitant]
  4. COLCHICINE [Concomitant]
  5. LISINOPRIL [Concomitant]
  6. ALEVE (CAPLET) [Concomitant]
  7. SIMVASTATIN [Concomitant]

REACTIONS (1)
  - WEIGHT INCREASED [None]
